FAERS Safety Report 8848397 (Version 3)
Quarter: 2013Q1

REPORT INFORMATION
  Report Type: Spontaneous
  Country: US (occurrence: US)
  Receive Date: 20121019
  Receipt Date: 20130222
  Transmission Date: 20140127
  Serious: Yes (Other)
  Sender: FDA-Public Use
  Company Number: US-BIOGENIDEC-2012BI045140

PATIENT
  Age: 50 Year
  Sex: Female

DRUGS (8)
  1. TYSABRI [Suspect]
     Indication: MULTIPLE SCLEROSIS
     Route: 042
     Dates: start: 20070823
  2. CARBAMAZEPINE [Concomitant]
     Indication: PARTIAL SEIZURES
  3. VIMPAT [Concomitant]
     Indication: PARTIAL SEIZURES
  4. PROZAC [Concomitant]
     Indication: POST-TRAUMATIC STRESS DISORDER
  5. PRISTIQ [Concomitant]
     Indication: POST-TRAUMATIC STRESS DISORDER
  6. PERCOCET [Concomitant]
     Indication: BACK PAIN
     Route: 048
  7. TORADOL [Concomitant]
     Indication: BACK PAIN
  8. FLEXERIL [Concomitant]
     Indication: BACK PAIN
     Route: 048

REACTIONS (6)
  - Partial seizures [Recovered/Resolved]
  - Tremor [Recovered/Resolved]
  - Hypoaesthesia [Recovered/Resolved]
  - Confusional arousal [Unknown]
  - Fatigue [Unknown]
  - Fall [Recovered/Resolved]
